FAERS Safety Report 10484978 (Version 3)
Quarter: 2014Q4

REPORT INFORMATION
  Report Type: Report from Study
  Country: AU (occurrence: AU)
  Receive Date: 20140930
  Receipt Date: 20141125
  Transmission Date: 20150528
  Serious: Yes (Hospitalization)
  Sender: FDA-Public Use
  Company Number: AU-009507513-1403AUS003511

PATIENT
  Age: 76 Year
  Sex: Male
  Weight: 110.5 kg

DRUGS (9)
  1. PEMBROLIZUMAB. [Suspect]
     Active Substance: PEMBROLIZUMAB
     Indication: MALIGNANT MELANOMA
     Dosage: 10 MG/KG, Q2W
     Route: 042
     Dates: start: 20131017, end: 20140207
  2. LEVOTHYROXINE SODIUM. [Concomitant]
     Active Substance: LEVOTHYROXINE SODIUM
     Indication: HYPERTHYROIDISM
     Dosage: 150 MICROGRAM, QD
     Route: 048
     Dates: start: 201201
  3. OMEGA-3 MARINE TRIGLYCERIDES [Concomitant]
     Active Substance: FISH OIL
     Indication: ANALGESIC THERAPY
     Dosage: 1 DF (TABLET), QD
     Route: 048
     Dates: start: 20140221
  4. PEMBROLIZUMAB. [Suspect]
     Active Substance: PEMBROLIZUMAB
     Dosage: 10 MG/KG, Q2W
     Route: 042
     Dates: start: 20140321
  5. NEUROFEN [Concomitant]
     Active Substance: IBUPROFEN
     Indication: ANALGESIC THERAPY
     Dosage: 200 MG DAILY, AS NEEDED (PRN)
     Route: 048
     Dates: start: 20140221
  6. PEMBROLIZUMAB. [Suspect]
     Active Substance: PEMBROLIZUMAB
     Dosage: 10 MG/KG, Q2W
     Route: 042
     Dates: start: 20140221, end: 20140221
  7. ROSUVASTATIN CALCIUM. [Concomitant]
     Active Substance: ROSUVASTATIN CALCIUM
     Indication: HYPERCHOLESTEROLAEMIA
     Dosage: 10 MG, QD
     Route: 048
     Dates: start: 200901
  8. TRANDOLAPRIL. [Concomitant]
     Active Substance: TRANDOLAPRIL
     Indication: HYPERTENSION
     Dosage: 4.0 MG, QD
     Route: 048
     Dates: start: 199501
  9. MOXONIDINE [Concomitant]
     Active Substance: MOXONIDINE
     Indication: HYPERTENSION
     Dosage: 0.2 MG, QD
     Route: 048
     Dates: start: 201301, end: 20140627

REACTIONS (1)
  - Hypopituitarism [Recovered/Resolved with Sequelae]

NARRATIVE: CASE EVENT DATE: 20140224
